FAERS Safety Report 16320264 (Version 1)
Quarter: 2019Q2

REPORT INFORMATION
  Report Type: Spontaneous
  Country: US (occurrence: US)
  Receive Date: 20190515
  Receipt Date: 20190515
  Transmission Date: 20190711
  Serious: Yes (Hospitalization)
  Sender: FDA-Public Use
  Company Number: None

PATIENT
  Age: 51 Year
  Sex: Female

DRUGS (18)
  1. CRESTOR [Concomitant]
     Active Substance: ROSUVASTATIN CALCIUM
  2. LIDOCAINE. [Concomitant]
     Active Substance: LIDOCAINE
  3. ONDANSETRON [Concomitant]
     Active Substance: ONDANSETRON
  4. RIZATRIPTAN. [Concomitant]
     Active Substance: RIZATRIPTAN
  5. CHLORPHENIR [Concomitant]
  6. CLOBETASOL [Concomitant]
     Active Substance: CLOBETASOL
  7. SYMBICORT [Concomitant]
     Active Substance: BUDESONIDE\FORMOTEROL FUMARATE DIHYDRATE
  8. BOTOX [Suspect]
     Active Substance: ONABOTULINUMTOXINA
     Indication: MIGRAINE WITH AURA
     Dosage: ?          OTHER FREQUENCY:EVER 3 MONTHS;?
     Route: 030
     Dates: start: 20130710
  9. PHENOBARB [Concomitant]
     Active Substance: PHENOBARBITAL SODIUM
  10. VITAMIN B2 [Concomitant]
     Active Substance: RIBOFLAVIN
  11. BUPROPN HCL [Concomitant]
     Active Substance: BUPROPION HYDROCHLORIDE
  12. LANSOPRAZOLE. [Concomitant]
     Active Substance: LANSOPRAZOLE
  13. FENTANYL. [Concomitant]
     Active Substance: FENTANYL
  14. HYOSCYAMINE. [Concomitant]
     Active Substance: HYOSCYAMINE
  15. MMVEY LO [Concomitant]
  16. PROAIR HFA [Concomitant]
     Active Substance: ALBUTEROL SULFATE
  17. FEXOFENADINE [Concomitant]
     Active Substance: FEXOFENADINE\FEXOFENADINE HYDROCHLORIDE
  18. LINZESS [Concomitant]
     Active Substance: LINACLOTIDE

REACTIONS (1)
  - Spinal operation [None]

NARRATIVE: CASE EVENT DATE: 20190402
